APPROVED DRUG PRODUCT: CYCLOPHOSPHAMIDE
Active Ingredient: CYCLOPHOSPHAMIDE
Strength: 2GM/VIAL
Dosage Form/Route: INJECTABLE;INJECTION
Application: A204555 | Product #003 | TE Code: AP
Applicant: JIANGSU HENGRUI PHARMACEUTICALS CO LTD
Approved: Oct 31, 2014 | RLD: No | RS: No | Type: RX